FAERS Safety Report 5400933-3 (Version None)
Quarter: 2007Q3

REPORT INFORMATION
  Report Type: 
  Country: None (occurrence: None)
  Receive Date: 20070730
  Receipt Date: 20070430
  Transmission Date: 20080115
  Serious: No
  Sender: FDA-Public Use
  Company Number: A0649286A

PATIENT
  Age: 3 Month
  Sex: Male

DRUGS (1)
  1. ZANTAC 150 [Suspect]
     Indication: DRUG USE FOR UNKNOWN INDICATION
     Dosage: .6ML THREE TIMES PER DAY
     Route: 048
     Dates: start: 20070423

REACTIONS (1)
  - FAECES DISCOLOURED [None]
